FAERS Safety Report 7604510-5 (Version None)
Quarter: 2011Q3

REPORT INFORMATION
  Report Type: 
  Country: None (occurrence: None)
  Receive Date: 20110712
  Receipt Date: 20110629
  Transmission Date: 20111222
  Serious: Yes (Other)
  Sender: FDA-Public Use
  Company Number: JP-UCBSA-019931

PATIENT
  Sex: Male

DRUGS (10)
  1. CERTOLIZUMAB PEGOL [Suspect]
     Indication: RHEUMATOID ARTHRITIS
     Route: 058
  2. CERTOLIZUMAB PEGOL [Suspect]
     Route: 058
     Dates: start: 20100608, end: 20110524
  3. MELOXICAM [Concomitant]
     Dates: start: 20100830
  4. TIOTROPIUM BROMIDE HYDRATE [Concomitant]
     Dates: start: 20101122
  5. PREDNISOLONE [Suspect]
     Indication: RHEUMATOID ARTHRITIS
     Route: 048
     Dates: start: 20101207
  6. CERTOLIZUMAB PEGOL [Suspect]
     Route: 058
     Dates: start: 20091124
  7. LANSOPRAZOLE [Concomitant]
     Dates: start: 20060605
  8. BETAMETHASONE BUTYRATE PROPIONATE [Concomitant]
     Dosage: ADEQUATE DOSE AS NEEDED
     Dates: start: 20101122
  9. HEPARIN [Concomitant]
     Dosage: ADEQUATE DOSE AS NEEDED
     Dates: start: 20101126
  10. DIFLUPREDNATE [Concomitant]
     Dosage: ADEQUATE DOSE AS NEEDED
     Dates: start: 20101221

REACTIONS (2)
  - FOREIGN BODY [None]
  - ASPERGILLOSIS [None]
